FAERS Safety Report 9856798 (Version 1)
Quarter: 2014Q1

REPORT INFORMATION
  Report Type: Report from Study
  Country: BR (occurrence: BR)
  Receive Date: 20140130
  Receipt Date: 20140130
  Transmission Date: 20141002
  Serious: Yes (Other)
  Sender: FDA-Public Use
  Company Number: PHHY2014BR008141

PATIENT
  Sex: Female
  Weight: 84 kg

DRUGS (5)
  1. METFORMIN [Suspect]
     Indication: DIABETES MELLITUS
     Dosage: 500 MG, TID
     Dates: end: 2012
  2. METFORMIN SANDOZ [Suspect]
     Indication: DIABETES MELLITUS
     Dosage: 850 MG, BID (1IN THE MORNING AND 1 AT NIGHT)
     Route: 048
  3. ENALAPRIL [Suspect]
     Indication: BLOOD PRESSURE ABNORMAL
     Dosage: 10 MG, UNK
     Dates: end: 2011
  4. ROSUVASTATIN [Suspect]
     Dosage: 160 MG, UNK
  5. LOSARTAN [Concomitant]
     Indication: BLOOD PRESSURE
     Dosage: 2 DF, A DAY
     Dates: start: 2011

REACTIONS (2)
  - Spinal column injury [Unknown]
  - Sciatica [Recovering/Resolving]
